FAERS Safety Report 4935251-0 (Version None)
Quarter: 2006Q1

REPORT INFORMATION
  Report Type: 
  Country: None (occurrence: None)
  Receive Date: 20060302
  Receipt Date: 20060214
  Transmission Date: 20060701
  Serious: Yes (Hospitalization)
  Sender: FDA-Public Use
  Company Number: 2005BI006490

PATIENT
  Age: 46 Year
  Sex: Female
  Weight: 87.9978 kg

DRUGS (9)
  1. NATALIZUMAB [Suspect]
     Indication: MULTIPLE SCLEROSIS
     Dosage: 300 MG;QM;IV
     Route: 042
     Dates: start: 20050221, end: 20050221
  2. MUPIROCIN [Concomitant]
  3. BACTROBAN [Concomitant]
  4. VALIUM [Concomitant]
  5. MS CONTIN [Concomitant]
  6. NEURONTIN [Concomitant]
  7. TOPAMAX [Concomitant]
  8. ENDOCET [Concomitant]
  9. TRIAMCINOLONE [Concomitant]

REACTIONS (8)
  - ABASIA [None]
  - BLOOD POTASSIUM DECREASED [None]
  - BURNS SECOND DEGREE [None]
  - FLUID RETENTION [None]
  - GANGRENE [None]
  - OEDEMA PERIPHERAL [None]
  - WEIGHT DECREASED [None]
  - WOUND INFECTION [None]
